FAERS Safety Report 5741082-4 (Version None)
Quarter: 2008Q2

REPORT INFORMATION
  Report Type: 
  Country: None (occurrence: None)
  Receive Date: 20080514
  Receipt Date: 20080507
  Transmission Date: 20081010
  Serious: Yes (Other)
  Sender: FDA-Public Use
  Company Number: CHPA2008US07850

PATIENT
  Sex: Female

DRUGS (1)
  1. NODOZ (CAFFEINE) CAPLET [Suspect]
     Indication: SOMNOLENCE
     Dosage: 200 MG, ONCE SINGLE, ORAL
     Route: 048
     Dates: start: 20080506

REACTIONS (1)
  - TREMOR [None]
